FAERS Safety Report 21698782 (Version 2)
Quarter: 2023Q1

REPORT INFORMATION
  Report Type: Report from Study
  Country: US (occurrence: US)
  Receive Date: 20221208
  Receipt Date: 20230106
  Transmission Date: 20230418
  Serious: No
  Sender: FDA-Public Use
  Company Number: US-BRISTOL-MYERS SQUIBB COMPANY-2022-149245

PATIENT
  Age: 64 Year
  Sex: Male
  Weight: 113.4 kg

DRUGS (1)
  1. REVLIMID [Suspect]
     Active Substance: LENALIDOMIDE
     Indication: Plasma cell myeloma
     Dosage: FREQ: TAKE 1 CAPSULE DAILY FOR 21 DAYS THEN 7DAYS OFF
     Route: 048
     Dates: start: 202212

REACTIONS (1)
  - Off label use [Unknown]
